FAERS Safety Report 10034867 (Version 2)
Quarter: 2014Q2

REPORT INFORMATION
  Report Type: Spontaneous
  Country: NL (occurrence: NL)
  Receive Date: 20140325
  Receipt Date: 20140421
  Transmission Date: 20141212
  Serious: Yes (Hospitalization)
  Sender: FDA-Public Use
  Company Number: NL-AMGEN-NLDSP2013092504

PATIENT
  Age: 58 Year
  Sex: Male

DRUGS (2)
  1. NEULASTA [Suspect]
     Indication: PROPHYLAXIS
     Dosage: 6 ML, 1X2W
     Route: 058
     Dates: start: 20130506
  2. ARANESP [Suspect]
     Indication: ANAEMIA
     Dosage: 500 MCG, 1X3W
     Route: 058
     Dates: start: 20130315

REACTIONS (1)
  - Investigation [Unknown]
